FAERS Safety Report 8561050 (Version 2)
Quarter: 2012Q4

REPORT INFORMATION
  Report Type: Report from Study
  Country: DE (occurrence: DE)
  Receive Date: 20120514
  Receipt Date: 20121029
  Transmission Date: 20130627
  Serious: Yes (Hospitalization)
  Sender: FDA-Public Use
  Company Number: DE-GLAXOSMITHKLINE-B0800941A

PATIENT
  Age: 61 Year
  Sex: Female
  Weight: 64 kg

DRUGS (11)
  1. LAPATINIB [Suspect]
     Indication: BREAST CANCER
     Dosage: 750MG Per day
     Route: 048
     Dates: start: 20120301, end: 20120503
  2. CARBOPLATIN [Suspect]
     Indication: BREAST CANCER
     Dosage: 300MG Weekly
     Route: 042
     Dates: start: 20120301
  3. MYOCET [Suspect]
     Indication: BREAST CANCER
     Dosage: 35MG Weekly
     Route: 042
     Dates: start: 20120301
  4. PACLITAXEL [Suspect]
     Indication: BREAST CANCER
     Dosage: 139MG Weekly
     Route: 042
     Dates: start: 20120301
  5. TRASTUZUMAB [Suspect]
     Indication: BREAST CANCER
     Dosage: 384MG Weekly
     Route: 042
     Dates: start: 20120301
  6. PALONOSETRON [Concomitant]
     Dosage: .25MG per day
     Dates: start: 20120315
  7. DEXAMETHASONE [Concomitant]
     Dosage: 12MG per day
     Dates: start: 20120301
  8. RANITIDIN [Concomitant]
     Dosage: 50MG per day
     Dates: start: 20120301
  9. CLEMASTIN [Concomitant]
     Dates: start: 20120301
  10. ERYTHROPOIETIN [Concomitant]
  11. LENOGRASTIM [Concomitant]

REACTIONS (1)
  - General physical health deterioration [Recovered/Resolved]
